FAERS Safety Report 5672303-4 (Version None)
Quarter: 2008Q1

REPORT INFORMATION
  Report Type: 
  Country: None (occurrence: None)
  Receive Date: 20080319
  Receipt Date: 20080318
  Transmission Date: 20080703
  Serious: Yes (Other)
  Sender: FDA-Public Use
  Company Number: ES-WYE-G01266508

PATIENT
  Age: 41 Year
  Sex: Male

DRUGS (1)
  1. TYGACIL [Suspect]
     Indication: SEPSIS
     Dosage: UNKNOWN
     Dates: start: 20080315, end: 20080315

REACTIONS (5)
  - CHEST PAIN [None]
  - ERYTHEMA [None]
  - HYPERSENSITIVITY [None]
  - SENSE OF OPPRESSION [None]
  - TACHYCARDIA [None]
